FAERS Safety Report 7242195-0 (Version None)
Quarter: 2011Q1

REPORT INFORMATION
  Report Type: 
  Country: None (occurrence: None)
  Receive Date: 20110124
  Receipt Date: 20110114
  Transmission Date: 20110831
  Serious: Yes (Other)
  Sender: FDA-Public Use
  Company Number: DE-RB-020764-11

PATIENT

DRUGS (1)
  1. SUBOXONE [Suspect]
     Indication: DRUG DEPENDENCE
     Dosage: OTHER DOSING DETAILS UNKNOWN
     Route: 065

REACTIONS (3)
  - CERVICOBRACHIAL SYNDROME [None]
  - GASTROENTERITIS [None]
  - EPILEPSY [None]
